FAERS Safety Report 13520637 (Version 2)
Quarter: 2017Q2

REPORT INFORMATION
  Report Type: Spontaneous
  Country: LU (occurrence: LU)
  Receive Date: 20170508
  Receipt Date: 20170523
  Transmission Date: 20170830
  Serious: Yes (Other)
  Sender: FDA-Public Use
  Company Number: LU-ROCHE-1931475

PATIENT
  Age: 46 Year
  Sex: Female
  Weight: 86 kg

DRUGS (3)
  1. ROACTEMRA [Suspect]
     Active Substance: TOCILIZUMAB
     Indication: RHEUMATOID ARTHRITIS
     Route: 058
     Dates: start: 20161222
  2. ARAVA [Suspect]
     Active Substance: LEFLUNOMIDE
     Indication: RHEUMATOID ARTHRITIS
     Route: 048
  3. ROACTEMRA [Suspect]
     Active Substance: TOCILIZUMAB
     Indication: RHEUMATOID ARTHRITIS
     Dosage: 3 IV MONTHLY INFUSIONS (688 MG TOTAL MONTHLY DOSE)
     Route: 042
     Dates: start: 20151222, end: 2016

REACTIONS (1)
  - Carcinoid tumour pulmonary [Not Recovered/Not Resolved]

NARRATIVE: CASE EVENT DATE: 20170330
